FAERS Safety Report 21257601 (Version 1)
Quarter: 2022Q3

REPORT INFORMATION
  Report Type: Spontaneous
  Country: US (occurrence: None)
  Receive Date: 20220826
  Receipt Date: 20220826
  Transmission Date: 20221027
  Serious: No
  Sender: FDA-Public Use
  Company Number: US-Orexo US, Inc.-ORE202202-000009

PATIENT
  Age: 47 Year
  Sex: Male

DRUGS (2)
  1. ZUBSOLV [Suspect]
     Active Substance: BUPRENORPHINE HYDROCHLORIDE\NALOXONE HYDROCHLORIDE
     Indication: Drug dependence
     Dosage: ONCE A DAY
     Route: 060
  2. FENTANYL [Concomitant]
     Active Substance: FENTANYL
     Indication: Pancreatic carcinoma

REACTIONS (2)
  - Drug ineffective [Unknown]
  - Prescription drug used without a prescription [Unknown]
